FAERS Safety Report 9370555 (Version 1)
Quarter: 2013Q2

REPORT INFORMATION
  Report Type: Spontaneous
  Country: US (occurrence: US)
  Receive Date: 20130626
  Receipt Date: 20130626
  Transmission Date: 20140414
  Serious: Yes (Other)
  Sender: FDA-Public Use
  Company Number: US-ASTRAZENECA-2013SE47495

PATIENT
  Age: 62 Year
  Sex: Female

DRUGS (2)
  1. SEROQUEL [Suspect]
     Route: 048
     Dates: end: 2013
  2. VALIUM [Concomitant]

REACTIONS (5)
  - Renal failure acute [Unknown]
  - Arthralgia [Unknown]
  - Somnolence [Unknown]
  - Fall [Unknown]
  - Joint injury [Unknown]
